FAERS Safety Report 4470778-X (Version None)
Quarter: 2004Q4

REPORT INFORMATION
  Report Type: 
  Country: None (occurrence: None)
  Receive Date: 20041007
  Receipt Date: 20041007
  Transmission Date: 20050328
  Serious: No
  Sender: FDA-Public Use
  Company Number: None

PATIENT
  Age: 57 Year
  Sex: Male
  Weight: 90.7194 kg

DRUGS (1)
  1. LISINOPRIL [Suspect]
     Dosage: ONE TABLET   DAILY   ORAL
     Route: 048
     Dates: start: 20040704, end: 20040724

REACTIONS (5)
  - ADVERSE EVENT [None]
  - BLINDNESS [None]
  - EYE HAEMORRHAGE [None]
  - RETINAL TEAR [None]
  - VITREOUS FLOATERS [None]
